FAERS Safety Report 6912561-9 (Version None)
Quarter: 2010Q3

REPORT INFORMATION
  Report Type: 
  Country: None (occurrence: None)
  Receive Date: 20100806
  Receipt Date: 20080801
  Transmission Date: 20110219
  Serious: No
  Sender: FDA-Public Use
  Company Number: US-PFIZER INC-2008065086

PATIENT
  Age: 66 Year
  Sex: Male

DRUGS (3)
  1. DILANTIN [Suspect]
     Indication: CONVULSION
  2. TEMODAR [Suspect]
     Indication: GLIOBLASTOMA
     Dates: start: 20080602
  3. ALL OTHER THERAPEUTIC PRODUCTS [Concomitant]

REACTIONS (1)
  - RASH GENERALISED [None]
